FAERS Safety Report 13789826 (Version 1)
Quarter: 2017Q3

REPORT INFORMATION
  Report Type: Spontaneous
  Country: US (occurrence: US)
  Receive Date: 20170725
  Receipt Date: 20170725
  Transmission Date: 20171127
  Serious: No
  Sender: FDA-Public Use
  Company Number: US-PFIZER INC-2017316404

PATIENT
  Age: 65 Year
  Sex: Female
  Weight: 68.4 kg

DRUGS (4)
  1. LIPITOR [Concomitant]
     Active Substance: ATORVASTATIN CALCIUM
  2. CHANTIX [Suspect]
     Active Substance: VARENICLINE TARTRATE
     Indication: SMOKING CESSATION THERAPY
     Dosage: 1 MG, TWO A DAY
     Dates: start: 20170710, end: 20170718
  3. METFORMIN [Concomitant]
     Active Substance: METFORMIN HYDROCHLORIDE
     Indication: DIABETES MELLITUS
  4. DIABEND [Concomitant]

REACTIONS (11)
  - Diarrhoea [Unknown]
  - Feeling cold [Unknown]
  - Hyperhidrosis [Unknown]
  - Hot flush [Unknown]
  - Malaise [Unknown]
  - Abdominal pain upper [Unknown]
  - Blood glucose decreased [Unknown]
  - Constipation [Unknown]
  - Vomiting [Unknown]
  - Nausea [Unknown]
  - Insomnia [Unknown]

NARRATIVE: CASE EVENT DATE: 20170714
